FAERS Safety Report 8386032-X (Version None)
Quarter: 2012Q2

REPORT INFORMATION
  Report Type: 
  Country: None (occurrence: None)
  Receive Date: 20120525
  Receipt Date: 20111006
  Transmission Date: 20120825
  Serious: No
  Sender: FDA-Public Use
  Company Number: US-PFIZER INC-K201101185

PATIENT
  Age: 81 Year
  Sex: Male
  Weight: 70 kg

DRUGS (2)
  1. CORTISPORIN [Suspect]
     Dosage: 4 GTT, 4X/DAY
  2. DEBROX [Concomitant]

REACTIONS (1)
  - ACCIDENTAL EXPOSURE [None]
